FAERS Safety Report 9832901 (Version 1)
Quarter: 2014Q1

REPORT INFORMATION
  Report Type: Spontaneous
  Country: US (occurrence: US)
  Receive Date: 20140121
  Receipt Date: 20140121
  Transmission Date: 20141002
  Serious: No
  Sender: FDA-Public Use
  Company Number: US-009507513-1401USA008299

PATIENT
  Sex: Male

DRUGS (2)
  1. PROVENTIL [Suspect]
     Indication: CHRONIC OBSTRUCTIVE PULMONARY DISEASE
     Dosage: UNK UNK, PRN
     Route: 055
  2. PROVENTIL [Suspect]
     Dosage: UNK, PRN
     Route: 055

REACTIONS (4)
  - Emotional distress [Unknown]
  - Incorrect dose administered [Unknown]
  - Product quality issue [Unknown]
  - Off label use [Unknown]
